FAERS Safety Report 6477865-5 (Version None)
Quarter: 2009Q4

REPORT INFORMATION
  Report Type: 
  Country: None (occurrence: None)
  Receive Date: 20091207
  Receipt Date: 20091127
  Transmission Date: 20100525
  Serious: Yes (Other)
  Sender: FDA-Public Use
  Company Number: GXKR2009GB12959

PATIENT
  Sex: Male

DRUGS (1)
  1. DICLOFENAC (NGX) [Suspect]
     Dosage: 100 MG
     Route: 048

REACTIONS (2)
  - ANKLE FRACTURE [None]
  - FALL [None]
